FAERS Safety Report 4274342-7 (Version None)
Quarter: 2004Q1

REPORT INFORMATION
  Report Type: 
  Country: None (occurrence: None)
  Receive Date: 20040115
  Receipt Date: 20040106
  Transmission Date: 20041129
  Serious: Yes (Other)
  Sender: FDA-Public Use
  Company Number: 163-20785-03110140 (1)

PATIENT
  Age: 62 Year
  Sex: Male

DRUGS (3)
  1. THALOMID [Suspect]
     Indication: MULTIPLE MYELOMA
     Dosage: 200 MG, AT BEDTIME, ORAL
     Route: 048
     Dates: start: 20020701
  2. MELPHALAN (MELPHALAN) [Concomitant]
  3. PREDNISONE [Concomitant]

REACTIONS (1)
  - PULMONARY FIBROSIS [None]
